FAERS Safety Report 4799906-3 (Version None)
Quarter: 2005Q4

REPORT INFORMATION
  Report Type: 
  Country: None (occurrence: None)
  Receive Date: 20051017
  Receipt Date: 20050901
  Transmission Date: 20060501
  Serious: Yes (Hospitalization)
  Sender: FDA-Public Use
  Company Number: PHBS2005DE13353

PATIENT
  Age: 70 Year
  Sex: Female

DRUGS (4)
  1. PAMIDRONATE DISODIUM [Suspect]
     Indication: MULTIPLE MYELOMA
     Route: 042
     Dates: start: 20021101
  2. MELPHALAN [Concomitant]
     Dosage: 6 CYCLES
     Route: 065
     Dates: start: 20021201, end: 20030501
  3. PREDNISOLONE [Concomitant]
     Dosage: 6 CYCLES
     Route: 065
     Dates: start: 20021201, end: 20030501
  4. RADIATION THERAPY [Concomitant]
     Dosage: 48 GY
     Dates: start: 20021201, end: 20030501

REACTIONS (7)
  - BONE DISORDER [None]
  - IMPAIRED HEALING [None]
  - OSTEONECROSIS [None]
  - OSTEOTOMY [None]
  - PLASTIC SURGERY [None]
  - TOOTH EXTRACTION [None]
  - WOUND DEHISCENCE [None]
